FAERS Safety Report 13191509 (Version 1)
Quarter: 2017Q1

REPORT INFORMATION
  Report Type: Spontaneous
  Country: US (occurrence: US)
  Receive Date: 20170206
  Receipt Date: 20170206
  Transmission Date: 20170428
  Serious: No
  Sender: FDA-Public Use
  Company Number: None

PATIENT
  Age: 73 Year
  Sex: Male
  Weight: 74.2 kg

DRUGS (4)
  1. BACTRIM DS [Suspect]
     Active Substance: SULFAMETHOXAZOLE\TRIMETHOPRIM
     Indication: URINARY TRACT INFECTION
     Dosage: ?          QUANTITY:1 TABLET(S);?
     Route: 048
     Dates: start: 20170201, end: 20170203
  2. MYCELEX TROCHE [Concomitant]
  3. PROTOPIC OINTMENT [Concomitant]
  4. MELALEUCA VITAMINS [Concomitant]

REACTIONS (5)
  - Swollen tongue [None]
  - Tongue ulceration [None]
  - Mucosal inflammation [None]
  - Tongue discolouration [None]
  - Oral pain [None]

NARRATIVE: CASE EVENT DATE: 20170203
